FAERS Safety Report 7954439-8 (Version None)
Quarter: 2011Q4

REPORT INFORMATION
  Report Type: 
  Country: None (occurrence: None)
  Receive Date: 20111202
  Receipt Date: 20111122
  Transmission Date: 20120403
  Serious: Yes (Hospitalization)
  Sender: FDA-Public Use
  Company Number: FR-GLAXOSMITHKLINE-B0764199A

PATIENT
  Sex: Female

DRUGS (7)
  1. EFFEXOR [Concomitant]
  2. ZOVIRAX [Suspect]
     Indication: PRODUCT USED FOR UNKNOWN INDICATION
     Dosage: 900MG THREE TIMES PER DAY
     Route: 042
     Dates: start: 20110909, end: 20110923
  3. BISOPROLOL FUMARATE [Concomitant]
  4. LORAZEPAM [Concomitant]
  5. NICARDIPINE HCL [Concomitant]
  6. FLECAINIDE ACETATE [Concomitant]
  7. EZETIMIBE [Concomitant]

REACTIONS (1)
  - RENAL FAILURE ACUTE [None]
